FAERS Safety Report 23936157 (Version 1)
Quarter: 2024Q2

REPORT INFORMATION
  Report Type: Spontaneous
  Country: IT (occurrence: IT)
  Receive Date: 20240604
  Receipt Date: 20240604
  Transmission Date: 20240716
  Serious: Yes (Hospitalization)
  Sender: FDA-Public Use
  Company Number: IT-SUN PHARMACEUTICAL INDUSTRIES LTD-2024RR-449544

PATIENT
  Age: 57 Year
  Sex: Male

DRUGS (12)
  1. OCTREOTIDE ACETATE [Suspect]
     Active Substance: OCTREOTIDE ACETATE
     Indication: Varices oesophageal
     Dosage: 6 VIALS OF 0.1 MG IN 250 ML OF PHYSIOLOGICAL SOLUTION IN CONTINUOUS INFUSION AT 21 ML/H FOR 72 HOURS
     Route: 040
     Dates: start: 20240213, end: 20240214
  2. INSULIN LISPRO [Concomitant]
     Active Substance: INSULIN LISPRO
     Indication: Diabetes mellitus
     Dosage: 100 INTERNATIONAL UNIT
     Route: 065
  3. INSULIN LISPRO [Concomitant]
     Active Substance: INSULIN LISPRO
     Dosage: 5 UI X 3
     Route: 065
     Dates: start: 20240213
  4. LASIX [Concomitant]
     Active Substance: FUROSEMIDE
     Indication: Product used for unknown indication
     Dosage: 25 MILLIGRAM
     Route: 065
  5. TOUJEO [Concomitant]
     Active Substance: INSULIN GLARGINE
     Indication: Product used for unknown indication
     Dosage: 300 INTERNATIONAL UNIT
     Route: 065
  6. INDERAL [Concomitant]
     Active Substance: PROPRANOLOL HYDROCHLORIDE
     Indication: Pulmonary hypertension
     Dosage: 40 MILLIGRAM
     Route: 065
  7. INDERAL [Concomitant]
     Active Substance: PROPRANOLOL HYDROCHLORIDE
     Dosage: 20 MG X 3
     Route: 048
     Dates: start: 20240213
  8. TAMSULOSIN DOC GENERICI [Concomitant]
     Indication: Product used for unknown indication
     Dosage: 0.4 MILLIGRAM
     Route: 065
  9. PANTOPRAZOLE SODIUM [Concomitant]
     Active Substance: PANTOPRAZOLE SODIUM
     Indication: Oesophagitis
     Dosage: 40 MILLIGRAM
     Route: 065
  10. PANTOPRAZOLE SODIUM [Concomitant]
     Active Substance: PANTOPRAZOLE SODIUM
     Dosage: 40 MG IV BOLUS THEN 4 VIALS IN CONTINUOUS INFUSION
     Route: 065
     Dates: start: 20240213
  11. RIFAXIMIN [Concomitant]
     Active Substance: RIFAXIMIN
     Indication: Product used for unknown indication
     Dosage: 200 MILLIGRAM
     Route: 065
  12. LACTULOSE [Concomitant]
     Active Substance: LACTULOSE
     Indication: Product used for unknown indication
     Dosage: 2 TABLESPOONS X 3
     Route: 048
     Dates: start: 20240213

REACTIONS (1)
  - Drug-induced liver injury [Recovered/Resolved]

NARRATIVE: CASE EVENT DATE: 20240213
